FAERS Safety Report 7680311-7 (Version None)
Quarter: 2011Q3

REPORT INFORMATION
  Report Type: 
  Country: None (occurrence: None)
  Receive Date: 20110812
  Receipt Date: 20110803
  Transmission Date: 20111222
  Serious: Yes (Hospitalization)
  Sender: FDA-Public Use
  Company Number: US-GLAXOSMITHKLINE-A0929336A

PATIENT
  Age: 57 Year
  Sex: Female
  Weight: 128.2 kg

DRUGS (3)
  1. INHALER [Concomitant]
  2. CONCURRENT MEDICATIONS [Concomitant]
  3. ADVAIR DISKUS 100/50 [Suspect]
     Indication: PRODUCT USED FOR UNKNOWN INDICATION
     Route: 055
     Dates: start: 19960101

REACTIONS (3)
  - PNEUMONIA [None]
  - CELLULITIS [None]
  - BRONCHITIS [None]
